FAERS Safety Report 24355898 (Version 4)
Quarter: 2025Q1

REPORT INFORMATION
  Report Type: Report from Study
  Country: BR (occurrence: BR)
  Receive Date: 20240924
  Receipt Date: 20250320
  Transmission Date: 20250409
  Serious: Yes (Other)
  Sender: JOHNSON AND JOHNSON
  Company Number: BR-JNJFOC-20240955701

PATIENT
  Sex: Female
  Weight: 50 kg

DRUGS (5)
  1. GOLIMUMAB [Suspect]
     Active Substance: GOLIMUMAB
     Indication: Rheumatoid arthritis
     Dosage: LAST DOSE WAS APPLIED ON 27-AUG-2024.
     Route: 058
     Dates: start: 20180221
  2. GOLIMUMAB [Suspect]
     Active Substance: GOLIMUMAB
  3. GOLIMUMAB [Suspect]
     Active Substance: GOLIMUMAB
  4. SIMPONI [Suspect]
     Active Substance: GOLIMUMAB
     Indication: Rheumatoid arthritis
     Dosage: LAST DOSE WAS ON 28-AUG-2024
     Route: 058
     Dates: start: 202303
  5. SIMPONI [Suspect]
     Active Substance: GOLIMUMAB

REACTIONS (5)
  - Femur fracture [Unknown]
  - Tuberculosis [Unknown]
  - Joint injury [Unknown]
  - Traumatic lung injury [Not Recovered/Not Resolved]
  - Inflammation [Unknown]

NARRATIVE: CASE EVENT DATE: 20220101
